FAERS Safety Report 25517761 (Version 2)
Quarter: 2025Q3

REPORT INFORMATION
  Report Type: Spontaneous
  Country: US (occurrence: US)
  Receive Date: 20250704
  Receipt Date: 20250816
  Transmission Date: 20251020
  Serious: No
  Sender: ALEXION PHARMACEUTICALS
  Company Number: US-AstraZeneca-CH-00896485A

PATIENT
  Sex: Female

DRUGS (1)
  1. CALQUENCE [Suspect]
     Active Substance: ACALABRUTINIB
     Indication: Chronic lymphocytic leukaemia
     Route: 065

REACTIONS (8)
  - Menopause [Unknown]
  - Hot flush [Unknown]
  - Blood test [Unknown]
  - Genitourinary syndrome of menopause [Unknown]
  - Rash [Unknown]
  - Bronchitis [Unknown]
  - Adverse event [Unknown]
  - Lymphadenopathy [Unknown]
